FAERS Safety Report 14423541 (Version 7)
Quarter: 2019Q3

REPORT INFORMATION
  Report Type: Spontaneous
  Country: US (occurrence: US)
  Receive Date: 20180123
  Receipt Date: 20190705
  Transmission Date: 20191004
  Serious: No
  Sender: FDA-Public Use
  Company Number: US-PFIZER INC-2018027236

PATIENT
  Age: 81 Year
  Sex: Female

DRUGS (1)
  1. BOSULIF [Suspect]
     Active Substance: BOSUTINIB MONOHYDRATE
     Indication: CHRONIC MYELOID LEUKAEMIA
     Dosage: 100 MG, 1X/DAY, (QD)
     Route: 048
     Dates: start: 20170614

REACTIONS (5)
  - Skin disorder [Unknown]
  - Nausea [Unknown]
  - Food allergy [Unknown]
  - Fall [Unknown]
  - Tongue disorder [Unknown]
